FAERS Safety Report 17521014 (Version 1)
Quarter: 2020Q1

REPORT INFORMATION
  Report Type: Spontaneous
  Country: ES (occurrence: ES)
  Receive Date: 20200309
  Receipt Date: 20200309
  Transmission Date: 20200409
  Serious: Yes (Hospitalization)
  Sender: FDA-Public Use
  Company Number: ES-TEVA-2020-ES-1195586

PATIENT
  Age: 72 Year
  Sex: Female

DRUGS (12)
  1. LOSARTAN (7157A) [Concomitant]
     Active Substance: LOSARTAN
  2. ATENOLOL (356A) [Concomitant]
     Active Substance: ATENOLOL
  3. ATORVASTATINA (7400A) [Concomitant]
     Active Substance: ATORVASTATIN
  4. REPAGLINIDA (1063A) [Concomitant]
     Active Substance: REPAGLINIDE
  5. LORMETAZEPAM (88A) [Concomitant]
     Active Substance: LORMETAZEPAM
  6. LANTUS [Concomitant]
     Active Substance: INSULIN GLARGINE
  7. FEBUXOSTAT (8216A) [Concomitant]
  8. LORAZEPAM (1864A) [Concomitant]
     Active Substance: LORAZEPAM
  9. PIOGLITAZONA (1217A) [Suspect]
     Active Substance: PIOGLITAZONE HYDROCHLORIDE
     Indication: DIABETES MELLITUS
     Dosage: 15 MG
     Route: 065
     Dates: start: 20190513, end: 20200217
  10. CALCIFEDIOL (547A) [Concomitant]
  11. OMEPRAZOL (2141A) [Concomitant]
     Active Substance: OMEPRAZOLE
  12. ACETILSALICILICO ACIDO (176A) [Concomitant]
     Active Substance: ASPIRIN

REACTIONS (1)
  - Bladder neoplasm [Unknown]

NARRATIVE: CASE EVENT DATE: 20200210
